FAERS Safety Report 6045958-2 (Version None)
Quarter: 2009Q1

REPORT INFORMATION
  Report Type: 
  Country: None (occurrence: None)
  Receive Date: 20090116
  Receipt Date: 20090105
  Transmission Date: 20090719
  Serious: Yes (Other)
  Sender: FDA-Public Use
  Company Number: 1000001505

PATIENT
  Age: 60 Year
  Sex: Male
  Weight: 78 kg

DRUGS (3)
  1. ESCITALOPRAM [Suspect]
     Indication: DEPRESSION
     Dosage: 10 MG (10 MG, 1 IN 1 D) ,ORAL
     Route: 048
     Dates: start: 20080323, end: 20080811
  2. ZURCAL (TABLETS) [Concomitant]
  3. XALATAN [Concomitant]

REACTIONS (5)
  - BRADYCARDIA [None]
  - HEART RATE IRREGULAR [None]
  - MALAISE [None]
  - MUSCULOSKELETAL PAIN [None]
  - VENTRICULAR EXTRASYSTOLES [None]
